FAERS Safety Report 5809519-X (Version None)
Quarter: 2008Q3

REPORT INFORMATION
  Report Type: 
  Country: None (occurrence: None)
  Receive Date: 20080715
  Receipt Date: 20080704
  Transmission Date: 20090109
  Serious: Yes (Hospitalization, Other)
  Sender: FDA-Public Use
  Company Number: IT-WYE-H04065508

PATIENT
  Sex: Male
  Weight: 80 kg

DRUGS (7)
  1. SIROLIMUS [Suspect]
     Indication: PROPHYLAXIS AGAINST TRANSPLANT REJECTION
     Route: 048
     Dates: start: 20060606, end: 20080508
  2. SIROLIMUS [Suspect]
     Dosage: DOSE AND FREQUENCY NOT PROVIDED (COMMERCIAL RAPAMUNE)
     Route: 065
     Dates: end: 20080616
  3. PERINDOPRIL ERBUMINE [Concomitant]
     Indication: HYPERTENSION
     Route: 048
     Dates: start: 20041129
  4. CHLORHEXIDINE GLUCONATE [Concomitant]
     Route: 048
     Dates: start: 20070613, end: 20080409
  5. ASCORBIC ACID/ERGOCALCIFEROL/FOLIC ACID/NICOTINAMIDE/PANTHENOL/RETINOL [Concomitant]
     Route: 048
     Dates: start: 20070619, end: 20080409
  6. ACETYLSALICYLIC ACID SRT [Concomitant]
     Indication: HYPERTENSION
     Route: 048
     Dates: start: 20040610
  7. NORVASC [Concomitant]
     Indication: HYPERTENSION
     Route: 048
     Dates: start: 19970904

REACTIONS (1)
  - LOWER RESPIRATORY TRACT INFLAMMATION [None]
